FAERS Safety Report 4642225-6 (Version None)
Quarter: 2005Q2

REPORT INFORMATION
  Report Type: 
  Country: None (occurrence: None)
  Receive Date: 20050422
  Receipt Date: 20030226
  Transmission Date: 20051028
  Serious: Yes (Hospitalization)
  Sender: FDA-Public Use
  Company Number: US-BRISTOL-MYERS SQUIBB COMPANY-12197471

PATIENT
  Age: 22 Year
  Sex: Male

DRUGS (10)
  1. ZERIT [Suspect]
     Indication: ACQUIRED IMMUNODEFICIENCY SYNDROME
     Route: 048
     Dates: start: 20000117, end: 20020424
  2. ZERIT [Suspect]
     Indication: HIV INFECTION
     Route: 048
     Dates: start: 20000117, end: 20020424
  3. STOCRIN CAPS [Suspect]
     Indication: ACQUIRED IMMUNODEFICIENCY SYNDROME
     Route: 048
     Dates: start: 20000518, end: 20020424
  4. STOCRIN CAPS [Suspect]
     Indication: HIV INFECTION
     Route: 048
     Dates: start: 20000518, end: 20020424
  5. VIRACEPT [Suspect]
     Indication: ACQUIRED IMMUNODEFICIENCY SYNDROME
     Dosage: INITIATED AT 2,250 MG DAILY, DOSAGE DECREASED TO 2000 MG ON 19-MAY-00.
     Route: 048
     Dates: start: 20000117, end: 20020424
  6. VIRACEPT [Suspect]
     Indication: HIV INFECTION
     Dosage: INITIATED AT 2,250 MG DAILY, DOSAGE DECREASED TO 2000 MG ON 19-MAY-00.
     Route: 048
     Dates: start: 20000117, end: 20020424
  7. ZIAGEN [Suspect]
     Indication: ACQUIRED IMMUNODEFICIENCY SYNDROME
     Route: 048
     Dates: start: 20000518, end: 20020424
  8. ZIAGEN [Suspect]
     Indication: HIV INFECTION
     Route: 048
     Dates: start: 20000518, end: 20020424
  9. FEIBA [Concomitant]
     Dates: start: 20000117, end: 20020331
  10. NOVOSEVEN [Concomitant]
     Dates: start: 20000117, end: 20020331

REACTIONS (1)
  - NEPHROTIC SYNDROME [None]
